FAERS Safety Report 13012766 (Version 5)
Quarter: 2018Q2

REPORT INFORMATION
  Report Type: Spontaneous
  Country: JP (occurrence: JP)
  Receive Date: 20161209
  Receipt Date: 20180621
  Transmission Date: 20180711
  Serious: Yes (Other)
  Sender: FDA-Public Use
  Company Number: PHJP2016JP035539

PATIENT
  Age: 29 Year
  Sex: Female

DRUGS (1)
  1. PAZOPANIB [Suspect]
     Active Substance: PAZOPANIB
     Indication: BREAST ANGIOSARCOMA
     Dosage: UNK
     Route: 048

REACTIONS (2)
  - Blood pressure decreased [Unknown]
  - Haematochezia [Unknown]
